FAERS Safety Report 4845790-9 (Version None)
Quarter: 2005Q4

REPORT INFORMATION
  Report Type: 
  Country: None (occurrence: None)
  Receive Date: 20051202
  Receipt Date: 20051202
  Transmission Date: 20060501
  Serious: Yes (Hospitalization)
  Sender: FDA-Public Use
  Company Number: None

PATIENT
  Sex: Female
  Weight: 46 kg

DRUGS (9)
  1. IRINOTECAN HCL [Suspect]
     Indication: OESOPHAGEAL CARCINOMA
     Dosage: 85 IV
     Route: 042
     Dates: start: 20050923, end: 20051021
  2. CISPLATIN [Suspect]
     Indication: OESOPHAGEAL CARCINOMA
     Dosage: 30 IV
     Route: 042
     Dates: start: 20050923, end: 20051021
  3. CETUXIMAB (MG/M2), WK 1-9, WK 15-44 [Suspect]
     Indication: OESOPHAGEAL CARCINOMA
     Dosage: 250 IV
     Route: 042
     Dates: start: 20050916, end: 20051028
  4. XRT D1-5 WK 2-7 [Suspect]
     Indication: OESOPHAGEAL CARCINOMA
     Dosage: 180 CGY
     Dates: start: 20050919, end: 20051028
  5. ZOFRAN [Concomitant]
  6. IMODIUM [Concomitant]
  7. ATENOLOL [Concomitant]
  8. TRIAMTERENE [Concomitant]
  9. HYDROCHLOROTHIAZIDE [Concomitant]

REACTIONS (11)
  - ASTHENIA [None]
  - BLOOD CREATININE INCREASED [None]
  - BLOOD UREA INCREASED [None]
  - DEHYDRATION [None]
  - DIARRHOEA [None]
  - HYPOKALAEMIA [None]
  - LEUKOPENIA [None]
  - NAUSEA [None]
  - TACHYCARDIA [None]
  - VOMITING [None]
  - WHITE BLOOD CELL COUNT DECREASED [None]
